FAERS Safety Report 14479038 (Version 1)
Quarter: 2018Q1

REPORT INFORMATION
  Report Type: Spontaneous
  Country: US (occurrence: US)
  Receive Date: 20180202
  Receipt Date: 20180202
  Transmission Date: 20180509
  Serious: No
  Sender: FDA-Public Use
  Company Number: US-PFIZER INC-2018044275

PATIENT
  Age: 60 Year
  Sex: Female

DRUGS (3)
  1. ASPIR LOW [Suspect]
     Active Substance: ASPIRIN
     Dosage: 81 MG, UNK
  2. SULFASALAZINE. [Suspect]
     Active Substance: SULFASALAZINE
     Dosage: 500 MG, UNK
  3. BENADRYL [Suspect]
     Active Substance: DIPHENHYDRAMINE HYDROCHLORIDE
     Dosage: 25 MG, UNK

REACTIONS (1)
  - Drug hypersensitivity [Unknown]
